FAERS Safety Report 15005241 (Version 1)
Quarter: 2018Q2

REPORT INFORMATION
  Report Type: Spontaneous
  Country: US (occurrence: US)
  Receive Date: 20180613
  Receipt Date: 20180613
  Transmission Date: 20180711
  Serious: No
  Sender: FDA-Public Use
  Company Number: US-TARO-2017TAR00579

PATIENT
  Age: 25 Year
  Sex: Male
  Weight: 104.31 kg

DRUGS (5)
  1. ALIGN PROBIOTIC [Concomitant]
     Dosage: 4 MG, 1X/DAY
  2. ALOSETRON [Concomitant]
     Active Substance: ALOSETRON
     Dosage: 0.5 MG, AS NEEDED
  3. CLARITIN-D NOS [Concomitant]
     Active Substance: LORATADINE\PSEUDOEPHEDRINE SULFATE
     Dosage: UNK, 1X/DAY
  4. NORTRIPTYLINE HCL CAPSULES 25 MG [Suspect]
     Active Substance: NORTRIPTYLINE HYDROCHLORIDE
     Indication: NEURALGIA
     Dosage: 25 MG, 1X/DAY AT NIGHT
     Route: 048
     Dates: start: 20170621
  5. VITAMIN D [Concomitant]
     Active Substance: CHOLECALCIFEROL
     Dosage: 1000 IU, UNK

REACTIONS (3)
  - Product quality issue [Not Recovered/Not Resolved]
  - Drug ineffective for unapproved indication [Not Recovered/Not Resolved]
  - Medication residue present [Not Recovered/Not Resolved]

NARRATIVE: CASE EVENT DATE: 2017
